FAERS Safety Report 10289255 (Version 2)
Quarter: 2014Q3

REPORT INFORMATION
  Report Type: Spontaneous
  Country: US (occurrence: US)
  Receive Date: 20140710
  Receipt Date: 20140901
  Transmission Date: 20150326
  Serious: No
  Sender: FDA-Public Use
  Company Number: US-BIOGENIDEC-2014BI063241

PATIENT
  Age: 9 Year
  Sex: Male

DRUGS (1)
  1. ALPROLIX [Suspect]
     Active Substance: EFTRENONACOG ALFA
     Indication: HAEMOPHILIA
     Route: 042
     Dates: start: 20140612

REACTIONS (1)
  - Coagulation factor IX level decreased [Not Recovered/Not Resolved]

NARRATIVE: CASE EVENT DATE: 201406
